FAERS Safety Report 4691424-6 (Version None)
Quarter: 2005Q2

REPORT INFORMATION
  Report Type: 
  Country: None (occurrence: None)
  Receive Date: 20050615
  Receipt Date: 20050606
  Transmission Date: 20051028
  Serious: No
  Sender: FDA-Public Use
  Company Number: TAP2005Q00930

PATIENT
  Age: 52 Year
  Sex: Female

DRUGS (1)
  1. PREVPAC (LANSOPRAZOLE  CLARITHROMYCIN, AMOXICILLIN) (CAPSULES) [Suspect]
     Dosage: 0.5 CARD, ONCE, PER ORAL
     Route: 048
     Dates: start: 20050602, end: 20050602

REACTIONS (4)
  - DIZZINESS [None]
  - HEADACHE [None]
  - NERVOUSNESS [None]
  - VISION BLURRED [None]
